FAERS Safety Report 7958714-2 (Version None)
Quarter: 2011Q4

REPORT INFORMATION
  Report Type: 
  Country: None (occurrence: None)
  Receive Date: 20111206
  Receipt Date: 20111129
  Transmission Date: 20120403
  Serious: No
  Sender: FDA-Public Use
  Company Number: US-TEVA-312054USA

PATIENT
  Sex: Female
  Weight: 52.21 kg

DRUGS (2)
  1. IRON SUPPLEMENT [Concomitant]
     Indication: ANAEMIA
  2. PLAN B ONE-STEP [Suspect]
     Indication: POST COITAL CONTRACEPTION
     Dosage: 1.5 MILLIGRAM;
     Route: 048
     Dates: start: 20111119, end: 20111119

REACTIONS (5)
  - FATIGUE [None]
  - NIPPLE PAIN [None]
  - NAUSEA [None]
  - HEADACHE [None]
  - MENSTRUATION IRREGULAR [None]
